FAERS Safety Report 4568037-X (Version None)
Quarter: 2005Q1

REPORT INFORMATION
  Report Type: 
  Country: None (occurrence: None)
  Receive Date: 20050202
  Receipt Date: 20050127
  Transmission Date: 20050727
  Serious: Yes (Death)
  Sender: FDA-Public Use
  Company Number: 200510325FR

PATIENT
  Age: 51 Year
  Sex: Male

DRUGS (8)
  1. LASILIX [Suspect]
     Route: 048
     Dates: start: 20040510, end: 20041213
  2. OFLOXACIN [Suspect]
     Route: 048
     Dates: start: 20041207
  3. OROKEN 200 MG [Suspect]
     Route: 048
     Dates: start: 20041207
  4. SOLU-MEDROL [Concomitant]
  5. PREVISCAN 20 MG [Concomitant]
     Route: 048
  6. MODAMIDE [Concomitant]
  7. TARDYFERON [Concomitant]
     Route: 048
  8. MEDROL [Concomitant]
     Route: 048

REACTIONS (13)
  - CHOLESTASIS [None]
  - EPISTAXIS [None]
  - GLOMERULONEPHRITIS [None]
  - HAEMATOMA [None]
  - NEPHROTIC SYNDROME [None]
  - OVERDOSE [None]
  - RENAL VEIN THROMBOSIS [None]
  - THROMBOCYTOPENIA [None]
  - THROMBOPHLEBITIS [None]
  - THROMBOPHLEBITIS OF VENA CAVA [None]
  - TREATMENT NONCOMPLIANCE [None]
  - URINARY TRACT INFECTION ENTEROCOCCAL [None]
  - URINARY TRACT INFECTION PSEUDOMONAL [None]
